FAERS Safety Report 16856232 (Version 4)
Quarter: 2020Q1

REPORT INFORMATION
  Report Type: Report from Study
  Country: BR (occurrence: BR)
  Receive Date: 20190926
  Receipt Date: 20200116
  Transmission Date: 20200409
  Serious: Yes (Other)
  Sender: FDA-Public Use
  Company Number: PHHY2019BR024612

PATIENT
  Age: 46 Year
  Sex: Female
  Weight: 93 kg

DRUGS (3)
  1. COSENTYX [Suspect]
     Active Substance: SECUKINUMAB
     Indication: PSORIATIC ARTHROPATHY
     Dosage: 300 MG, QMO
     Route: 058
     Dates: start: 20180814
  2. COSENTYX [Suspect]
     Active Substance: SECUKINUMAB
     Dosage: UNK
     Route: 065
     Dates: start: 20190212
  3. COSENTYX [Suspect]
     Active Substance: SECUKINUMAB
     Dosage: UNK
     Route: 065
     Dates: start: 20190423

REACTIONS (24)
  - Cough [Recovered/Resolved]
  - Nasopharyngitis [Recovered/Resolved]
  - Oropharyngeal pain [Recovered/Resolved]
  - Nasal pruritus [Recovered/Resolved]
  - Peripheral swelling [Unknown]
  - Rheumatic disorder [Unknown]
  - Injection site discolouration [Recovered/Resolved]
  - Diarrhoea [Recovered/Resolved]
  - Dry throat [Recovered/Resolved]
  - Dysmenorrhoea [Recovered/Resolved]
  - Viral infection [Recovered/Resolved]
  - Neck pain [Recovered/Resolved]
  - Arthralgia [Unknown]
  - Pain [Recovering/Resolving]
  - Psoriasis [Recovering/Resolving]
  - Headache [Recovered/Resolved]
  - Rhinorrhoea [Recovered/Resolved]
  - Nasopharyngitis [Recovered/Resolved]
  - Headache [Recovered/Resolved]
  - Injection site pruritus [Recovered/Resolved]
  - Injection site pain [Recovered/Resolved]
  - Viral infection [Recovered/Resolved]
  - Macule [Recovering/Resolving]
  - Malaise [Recovered/Resolved]

NARRATIVE: CASE EVENT DATE: 201901
